FAERS Safety Report 4348502-0 (Version None)
Quarter: 2004Q2

REPORT INFORMATION
  Report Type: 
  Country: None (occurrence: None)
  Receive Date: 20040427
  Receipt Date: 20040420
  Transmission Date: 20050107
  Serious: Yes (Hospitalization)
  Sender: FDA-Public Use
  Company Number: PHBS2004CZ05378

PATIENT
  Age: 1 Year
  Sex: Female

DRUGS (1)
  1. ELIDEL [Suspect]
     Dosage: UNK, BID
     Dates: start: 20031125

REACTIONS (1)
  - APHTHOUS STOMATITIS [None]
